FAERS Safety Report 8692594 (Version 2)
Quarter: 2013Q4

REPORT INFORMATION
  Report Type: Spontaneous
  Country: US (occurrence: US)
  Receive Date: 20120730
  Receipt Date: 20131031
  Transmission Date: 20140711
  Serious: No
  Sender: FDA-Public Use
  Company Number: US-009507513-2012SP016260

PATIENT
  Age: 4 Year
  Sex: Male
  Weight: 19.05 kg

DRUGS (3)
  1. CLARITIN CHEWABLE TABLETS [Suspect]
     Indication: NASOPHARYNGITIS
     Dosage: UNK UNK, ONCE
     Route: 048
     Dates: start: 20120229
  2. CLARITIN CHEWABLE TABLETS [Suspect]
     Indication: NASAL CONGESTION
     Dosage: 5 MG, UNKNOWN
     Route: 048
     Dates: start: 20110811, end: 20110815
  3. CLARITIN CHEWABLE TABLETS [Suspect]
     Indication: SINUSITIS

REACTIONS (3)
  - Drug ineffective for unapproved indication [Unknown]
  - Overdose [Recovered/Resolved]
  - Off label use [Unknown]
